FAERS Safety Report 7964839-8 (Version None)
Quarter: 2011Q4

REPORT INFORMATION
  Report Type: 
  Country: None (occurrence: None)
  Receive Date: 20111208
  Receipt Date: 20111130
  Transmission Date: 20120403
  Serious: Yes (Hospitalization)
  Sender: FDA-Public Use
  Company Number: PHHO2010JP03855

PATIENT
  Sex: Male
  Weight: 76 kg

DRUGS (9)
  1. ASPIRIN [Concomitant]
     Dosage: UNK
  2. ZETIA [Concomitant]
  3. NOVORAPID [Concomitant]
     Dosage: UNK
  4. CANDESARTAN CILEXETIL [Concomitant]
     Dosage: UNK
  5. AMLODIPINE [Concomitant]
     Dosage: UNK
  6. ACTOS [Concomitant]
     Dosage: 30 MG, QD
     Dates: start: 20110929
  7. ALISKIREN [Suspect]
     Indication: CARDIOVASCULAR DISORDER
     Dosage: UNK
     Route: 048
     Dates: start: 20080610
  8. PLAVIX [Concomitant]
     Dosage: UNK
  9. NIZATIDINE [Concomitant]
     Dosage: UNK

REACTIONS (4)
  - COLONIC POLYP [None]
  - CHEST PAIN [None]
  - CORONARY ARTERY OCCLUSION [None]
  - ANGINA PECTORIS [None]
